FAERS Safety Report 11793081 (Version 1)
Quarter: 2015Q4

REPORT INFORMATION
  Report Type: Spontaneous
  Country: JP (occurrence: JP)
  Receive Date: 20151202
  Receipt Date: 20151202
  Transmission Date: 20160305
  Serious: Yes (Hospitalization, Other)
  Sender: FDA-Public Use
  Company Number: JP-ACTAVIS-2015-26116

PATIENT
  Age: 78 Year
  Sex: Female

DRUGS (3)
  1. FLUVOXAMINE (UNKNOWN) [Suspect]
     Active Substance: FLUVOXAMINE
     Indication: DEMENTIA ALZHEIMER^S TYPE
     Dosage: UNK
     Route: 065
  2. MEMANTINE. [Concomitant]
     Active Substance: MEMANTINE
     Indication: DEMENTIA ALZHEIMER^S TYPE
     Dosage: UNK
     Route: 065
  3. VALPROIC ACID. [Suspect]
     Active Substance: VALPROIC ACID
     Indication: DEMENTIA ALZHEIMER^S TYPE
     Dosage: UNK
     Route: 065

REACTIONS (2)
  - Ulcer [Recovered/Resolved]
  - Akinesia [Recovered/Resolved]
